FAERS Safety Report 14353060 (Version 2)
Quarter: 2018Q1

REPORT INFORMATION
  Report Type: Spontaneous
  Country: US (occurrence: US)
  Receive Date: 20180104
  Receipt Date: 20180306
  Transmission Date: 20180509
  Serious: No
  Sender: FDA-Public Use
  Company Number: US-MYLANLABS-2017M1077329

PATIENT
  Sex: Female

DRUGS (2)
  1. TRETINOIN GEL, USP 0.05% [Suspect]
     Active Substance: TRETINOIN
     Indication: SKIN DISORDER
     Dosage: UNK
     Route: 061
  2. TRETINOIN GEL, USP 0.05% [Suspect]
     Active Substance: TRETINOIN
     Dosage: UNK
     Route: 061

REACTIONS (3)
  - Drug ineffective [Not Recovered/Not Resolved]
  - Product quality issue [Unknown]
  - Condition aggravated [Not Recovered/Not Resolved]
